FAERS Safety Report 13015585 (Version 1)
Quarter: 2016Q4

REPORT INFORMATION
  Report Type: Spontaneous
  Country: US (occurrence: US)
  Receive Date: 20161212
  Receipt Date: 20161212
  Transmission Date: 20170207
  Serious: Yes (Hospitalization, Other)
  Sender: FDA-Public Use
  Company Number: US-TEVA-703103USA

PATIENT
  Age: 54 Year
  Sex: Male
  Weight: 97 kg

DRUGS (8)
  1. PEGPH20 [Concomitant]
     Active Substance: HYALURONIDASE RECOMBINANT HUMAN
     Indication: NEOPLASM
     Dosage: DAYS 1, 8,AND 15 OF EACH 21 DAY CYCLE
     Route: 042
     Dates: start: 20160413, end: 20160420
  2. ENOXAPARIN [Suspect]
     Active Substance: ENOXAPARIN
     Dosage: 100 MILLIGRAM DAILY;
     Route: 065
     Dates: start: 20160413, end: 20160420
  3. LISINOPRIL. [Concomitant]
     Active Substance: LISINOPRIL
     Route: 048
     Dates: start: 2006
  4. OMEPRAZOLE. [Concomitant]
     Active Substance: OMEPRAZOLE
     Route: 065
     Dates: start: 20131220
  5. PEMBROLLZUMAB [Concomitant]
     Indication: NEOPLASM
     Dosage: DAY 1 OF EACH 21 DAY CYCLE
     Route: 042
     Dates: start: 20160413
  6. INSULIN [Concomitant]
     Active Substance: INSULIN NOS
     Route: 065
     Dates: start: 201510
  7. PIROXICAM. [Concomitant]
     Active Substance: PIROXICAM
     Route: 065
     Dates: start: 20160413, end: 20160420
  8. CLINDAMYCIN PHOSPHATE. [Concomitant]
     Active Substance: CLINDAMYCIN PHOSPHATE
     Route: 061

REACTIONS (1)
  - Upper gastrointestinal haemorrhage [Recovered/Resolved]

NARRATIVE: CASE EVENT DATE: 20160420
